FAERS Safety Report 22319893 (Version 1)
Quarter: 2023Q2

REPORT INFORMATION
  Report Type: Report from Study
  Country: GB (occurrence: GB)
  Receive Date: 20230515
  Receipt Date: 20230515
  Transmission Date: 20230722
  Serious: Yes (Other)
  Sender: FDA-Public Use
  Company Number: GB-TEVA-2023-GB-2887020

PATIENT
  Sex: Female

DRUGS (1)
  1. AJOVY [Suspect]
     Active Substance: FREMANEZUMAB-VFRM
     Indication: Migraine
     Dosage: DOSE 225MG/1.5ML, FREQUENCY ONCE A MONTH
     Route: 065

REACTIONS (3)
  - Lower respiratory tract infection [Unknown]
  - Migraine [Unknown]
  - Nasopharyngitis [Unknown]
